FAERS Safety Report 8789442 (Version 1)
Quarter: 2012Q4

REPORT INFORMATION
  Report Type: Spontaneous
  Country: BR (occurrence: None)
  Receive Date: 20120905
  Receipt Date: 20120905
  Transmission Date: 20130627
  Serious: Yes (Death, Other)
  Sender: FDA-Public Use
  Company Number: DSA_59171_2012

PATIENT
  Age: 55 Year
  Sex: Female

DRUGS (5)
  1. FLUOROURACIL (FLUOROURACIL) [Suspect]
     Indication: COLON CANCER
     Route: 040
  2. FLUOROURACIL (FLUOROURACIL) [Suspect]
     Indication: COLON CANCER
     Dosage: (400 mg/m2 Intravenous bolus), (2400 mg/m2 in 46 hours Intravenous (not otherwise specified))
     Route: 042
  3. FOLINIC ACID [Concomitant]
  4. OXALIPLATIN [Concomitant]
  5. WARFARIN [Concomitant]

REACTIONS (5)
  - Acute coronary syndrome [None]
  - Mitral valve incompetence [None]
  - Colorectal cancer metastatic [None]
  - Malignant neoplasm progression [None]
  - Cardiotoxicity [None]
